FAERS Safety Report 10049570 (Version 1)
Quarter: 2014Q2

REPORT INFORMATION
  Report Type: Spontaneous
  Country: BE (occurrence: BE)
  Receive Date: 20140401
  Receipt Date: 20140401
  Transmission Date: 20141212
  Serious: Yes (Other)
  Sender: FDA-Public Use
  Company Number: BE-BAYER-2014-045947

PATIENT
  Age: 77 Year
  Sex: Female

DRUGS (6)
  1. PROFLOX [Suspect]
     Dosage: 400 MG, EVERY DAY
     Route: 048
     Dates: start: 20140113, end: 20140122
  2. FLUCONAZOLE [Suspect]
     Indication: PRODUCT USED FOR UNKNOWN INDICATION
     Dosage: 100 MG, EVERY DAY
     Route: 048
     Dates: start: 20140203, end: 20140205
  3. THYROXINE [Concomitant]
     Dosage: 0.125 MG, DAILY
  4. CARDIOASPIRIN [Concomitant]
     Dosage: 100 MG, DAILY
  5. EMCONCOR [Concomitant]
     Dosage: 2.5 MG, DAILY
  6. VITAMIN D [Concomitant]
     Dosage: 1 DF, QD

REACTIONS (9)
  - Ileus [Recovering/Resolving]
  - Somnolence [Recovering/Resolving]
  - Decreased appetite [Recovering/Resolving]
  - Vertigo [Recovering/Resolving]
  - Chromaturia [Recovering/Resolving]
  - Stomatitis [Recovering/Resolving]
  - Urinary tract infection [Recovering/Resolving]
  - Lethargy [Recovering/Resolving]
  - Speech disorder [Recovering/Resolving]
